FAERS Safety Report 23953393 (Version 1)
Quarter: 2024Q2

REPORT INFORMATION
  Report Type: Spontaneous
  Country: GB (occurrence: GB)
  Receive Date: 20240608
  Receipt Date: 20240608
  Transmission Date: 20240716
  Serious: Yes (Hospitalization, Disabling, Other)
  Sender: FDA-Public Use
  Company Number: None

PATIENT
  Age: 57 Year

DRUGS (11)
  1. ARIPIPRAZOLE [Suspect]
     Active Substance: ARIPIPRAZOLE
     Indication: Antipsychotic therapy
     Dosage: 30MG ONCE DAILY
     Route: 065
     Dates: end: 20240507
  2. LORAZEPAM [Concomitant]
     Active Substance: LORAZEPAM
     Indication: Agitation
  3. INVITA D3 [Concomitant]
  4. ZOPICLONE [Concomitant]
     Active Substance: ZOPICLONE
     Indication: Sleep disorder
  5. LITHIUM [Concomitant]
     Active Substance: LITHIUM
  6. ASPIRIN [Concomitant]
     Active Substance: ASPIRIN
  7. CYCLIZINE [Concomitant]
     Active Substance: CYCLIZINE
     Indication: Illness
  8. ESOMEPRAZOLE [Concomitant]
     Active Substance: ESOMEPRAZOLE
     Dosage: TEVA UK ESOMEPRAZOLE GASTRO-RESISTANT
  9. FERROUS SULFATE [Concomitant]
     Active Substance: FERROUS SULFATE
     Dosage: ACCORD-UK FERROUS SULFATE
  10. SITAGLIPTIN [Concomitant]
     Active Substance: SITAGLIPTIN
  11. ATORVASTATIN [Concomitant]
     Active Substance: ATORVASTATIN

REACTIONS (6)
  - Dyskinesia [Recovered/Resolved]
  - Hypertension [Unknown]
  - Balance disorder [Unknown]
  - Posture abnormal [Unknown]
  - Tremor [Unknown]
  - Confusional state [Unknown]

NARRATIVE: CASE EVENT DATE: 20240426
